FAERS Safety Report 9057546 (Version 1)
Quarter: 2013Q1

REPORT INFORMATION
  Report Type: Spontaneous
  Country: US (occurrence: None)
  Receive Date: 20130204
  Receipt Date: 20130204
  Transmission Date: 20140127
  Serious: Yes (Other)
  Sender: FDA-Public Use
  Company Number: None

PATIENT
  Age: 26 Year
  Sex: Male
  Weight: 58.97 kg

DRUGS (1)
  1. GABAPENTIN [Suspect]
     Indication: ANXIETY
     Route: 048
     Dates: start: 20130128, end: 20130128

REACTIONS (8)
  - Asthenia [None]
  - Restlessness [None]
  - Pain in extremity [None]
  - Agitation [None]
  - Panic attack [None]
  - Nausea [None]
  - Muscle twitching [None]
  - Tremor [None]
